FAERS Safety Report 5655770-1 (Version None)
Quarter: 2008Q1

REPORT INFORMATION
  Report Type: 
  Country: None (occurrence: None)
  Receive Date: 20080307
  Receipt Date: 20080228
  Transmission Date: 20080703
  Serious: Yes (Hospitalization, Disabling)
  Sender: FDA-Public Use
  Company Number: GB-ABBOTT-08P-167-0440427-00

PATIENT
  Age: 70 Year
  Sex: Male

DRUGS (5)
  1. EPILIM CHRONOSHERE [Suspect]
     Indication: EPILEPSY
     Route: 048
     Dates: start: 20071001, end: 20080201
  2. EPILIM CHRONOSHERE [Suspect]
     Route: 048
     Dates: end: 20071001
  3. DOXAZOSIN MESYLATE [Concomitant]
     Indication: HYPERTENSION
     Route: 048
  4. DIPYRIDAMOLE [Concomitant]
     Indication: CEREBROVASCULAR ACCIDENT
     Route: 048
  5. SIMVASTATIN [Concomitant]
     Indication: CEREBROVASCULAR ACCIDENT
     Route: 048

REACTIONS (11)
  - AMNESIA [None]
  - CONFUSIONAL STATE [None]
  - DEPRESSED LEVEL OF CONSCIOUSNESS [None]
  - ENCEPHALOPATHY [None]
  - HYPERAMMONAEMIA [None]
  - METABOLIC ENCEPHALOPATHY [None]
  - MOVEMENT DISORDER [None]
  - MUSCLE RIGIDITY [None]
  - PARANOIA [None]
  - PARKINSONIAN REST TREMOR [None]
  - TREMOR [None]
